FAERS Safety Report 19756175 (Version 3)
Quarter: 2022Q3

REPORT INFORMATION
  Report Type: Spontaneous
  Country: US (occurrence: US)
  Receive Date: 20210827
  Receipt Date: 20220715
  Transmission Date: 20221026
  Serious: Yes (Other)
  Sender: FDA-Public Use
  Company Number: US-PFIZER INC-202101042045

PATIENT
  Age: 74 Year
  Sex: Female
  Weight: 55.79 kg

DRUGS (2)
  1. IBRANCE [Suspect]
     Active Substance: PALBOCICLIB
     Indication: Breast cancer metastatic
     Dosage: 21 DAYS ON AND 7 DAYS OFF
     Route: 048
     Dates: start: 20210715, end: 20210810
  2. IBRANCE [Suspect]
     Active Substance: PALBOCICLIB
     Dosage: 75 MG, DAILY
     Route: 048
     Dates: end: 20220315

REACTIONS (11)
  - Neutropenia [Unknown]
  - Second primary malignancy [Unknown]
  - Bone cancer [Unknown]
  - Hepatic cancer [Unknown]
  - Lung neoplasm malignant [Unknown]
  - Lymphoma [Unknown]
  - Full blood count abnormal [Not Recovered/Not Resolved]
  - Asthenia [Unknown]
  - Weight decreased [Unknown]
  - Decreased appetite [Unknown]
  - Dyspnoea exertional [Unknown]

NARRATIVE: CASE EVENT DATE: 20210810
